FAERS Safety Report 12041078 (Version 1)
Quarter: 2016Q1

REPORT INFORMATION
  Report Type: Report from Study
  Country: US (occurrence: US)
  Receive Date: 20160208
  Receipt Date: 20160208
  Transmission Date: 20160526
  Serious: No
  Sender: FDA-Public Use
  Company Number: US-ABBVIE-15K-802-1525418-00

PATIENT
  Age: 49 Year
  Sex: Male

DRUGS (1)
  1. HUMIRA [Suspect]
     Active Substance: ADALIMUMAB
     Indication: COLITIS ULCERATIVE
     Dosage: INITIAL TIME
     Route: 058
     Dates: start: 20151209, end: 20151209

REACTIONS (5)
  - Abdominal pain [Unknown]
  - Diarrhoea [Recovering/Resolving]
  - Insomnia [Recovered/Resolved]
  - Anxiety [Unknown]
  - Diarrhoea haemorrhagic [Recovered/Resolved]

NARRATIVE: CASE EVENT DATE: 201512
